FAERS Safety Report 6763158-5 (Version None)
Quarter: 2010Q2

REPORT INFORMATION
  Report Type: 
  Country: None (occurrence: None)
  Receive Date: 20100608
  Receipt Date: 20100608
  Transmission Date: 20101027
  Serious: No
  Sender: FDA-Public Use
  Company Number: None

PATIENT
  Sex: Female
  Weight: 64.4108 kg

DRUGS (9)
  1. EVAMIST [Suspect]
     Indication: HOT FLUSH
     Dosage: 2 SPRAYS 1X/DAY TRANSDERMAL
     Route: 062
  2. LUPRON [Concomitant]
  3. RX ANTIHISTIMINE [Concomitant]
  4. RX NSAID [Concomitant]
  5. VIT B COMPLEX [Concomitant]
  6. VIT C [Concomitant]
  7. VIT D [Concomitant]
  8. CALCIUM CITRATE [Concomitant]
  9. FISH OIL [Concomitant]

REACTIONS (1)
  - APPLICATION SITE DISCOLOURATION [None]
